FAERS Safety Report 6117907-X (Version None)
Quarter: 2009Q1

REPORT INFORMATION
  Report Type: 
  Country: None (occurrence: None)
  Receive Date: 20090314
  Receipt Date: 20090202
  Transmission Date: 20090719
  Serious: Yes (Other)
  Sender: FDA-Public Use
  Company Number: US-ABBOTT-09P-163-0501278-00

PATIENT
  Sex: Female
  Weight: 51.302 kg

DRUGS (2)
  1. HUMIRA [Suspect]
     Indication: CROHN'S DISEASE
     Route: 058
     Dates: start: 20080501
  2. LEXAPRO [Concomitant]
     Indication: ANXIETY DISORDER
     Route: 048

REACTIONS (3)
  - FALL [None]
  - FOOT FRACTURE [None]
  - PAIN IN EXTREMITY [None]
